FAERS Safety Report 25592171 (Version 2)
Quarter: 2025Q3

REPORT INFORMATION
  Report Type: Spontaneous
  Country: EU (occurrence: EU)
  Receive Date: 20250722
  Receipt Date: 20250909
  Transmission Date: 20251020
  Serious: Yes (Hospitalization, Other)
  Sender: TAKEDA
  Company Number: EU-TAKEDA-2025TUS065240

PATIENT
  Age: 7 Year
  Sex: Female
  Weight: 26.2 kg

DRUGS (2)
  1. ADZYNMA [Suspect]
     Active Substance: ADAMTS13, RECOMBINANT-KRHN
     Indication: Prophylaxis
     Dosage: 1000 INTERNATIONAL UNIT, Q2WEEKS
  2. ADZYNMA [Suspect]
     Active Substance: ADAMTS13, RECOMBINANT-KRHN
     Indication: Congenital thrombotic thrombocytopenic purpura
     Dosage: 1000 INTERNATIONAL UNIT, Q2WEEKS

REACTIONS (2)
  - Thrombocytopenia [Not Recovered/Not Resolved]
  - Neurological symptom [Recovered/Resolved]

NARRATIVE: CASE EVENT DATE: 20250712
